FAERS Safety Report 6566149-2 (Version None)
Quarter: 2010Q1

REPORT INFORMATION
  Report Type: 
  Country: None (occurrence: None)
  Receive Date: 20100202
  Receipt Date: 20100125
  Transmission Date: 20100710
  Serious: Yes (Other)
  Sender: FDA-Public Use
  Company Number: JP-JNJFOC-20100110172

PATIENT
  Age: 64 Year
  Sex: Male

DRUGS (2)
  1. MICONAZOLE NITRATE [Suspect]
     Route: 048
  2. MICONAZOLE NITRATE [Suspect]
     Indication: DRUG USE FOR UNKNOWN INDICATION
     Route: 048

REACTIONS (2)
  - DRUG ERUPTION [None]
  - RASH PAPULAR [None]
